FAERS Safety Report 18243353 (Version 2)
Quarter: 2020Q3

REPORT INFORMATION
  Report Type: Spontaneous
  Country: PR (occurrence: PR)
  Receive Date: 20200908
  Receipt Date: 20200921
  Transmission Date: 20201103
  Serious: Yes (Hospitalization, Disabling, Other)
  Sender: FDA-Public Use
  Company Number: PR-GUERBET-PR-20200008

PATIENT
  Age: 56 Year
  Sex: Female
  Weight: 51.25 kg

DRUGS (1)
  1. DOTAREM [Suspect]
     Active Substance: GADOTERATE MEGLUMINE
     Indication: MAGNETIC RESONANCE IMAGING
     Route: 042
     Dates: start: 20200825, end: 20200825

REACTIONS (3)
  - Ischaemic stroke [Recovered/Resolved with Sequelae]
  - Chest pain [Unknown]
  - Blood pressure diastolic increased [Unknown]

NARRATIVE: CASE EVENT DATE: 20200825
